FAERS Safety Report 9172453 (Version 1)
Quarter: 2013Q1

REPORT INFORMATION
  Report Type: Spontaneous
  Country: US (occurrence: US)
  Receive Date: 20130319
  Receipt Date: 20130319
  Transmission Date: 20140127
  Serious: No
  Sender: FDA-Public Use
  Company Number: US-ASTRAZENECA-2013SE12507

PATIENT
  Sex: Female

DRUGS (3)
  1. ARIMIDEX [Suspect]
     Route: 048
  2. ARIMIDEX [Suspect]
     Route: 048
  3. TAMOZIFEN MANUFACTURER UNKNOWN [Suspect]
     Route: 042

REACTIONS (10)
  - Blood pressure increased [Unknown]
  - Nightmare [Unknown]
  - Fall [Unknown]
  - Tinnitus [Unknown]
  - Dizziness [Unknown]
  - Anxiety [Unknown]
  - Feeling abnormal [Unknown]
  - Hypotension [Unknown]
  - Hyperhidrosis [Unknown]
  - Intentional drug misuse [Unknown]
